FAERS Safety Report 6450552-5 (Version None)
Quarter: 2009Q4

REPORT INFORMATION
  Report Type: 
  Country: None (occurrence: None)
  Receive Date: 20091123
  Receipt Date: 20091113
  Transmission Date: 20100525
  Serious: Yes (Other)
  Sender: FDA-Public Use
  Company Number: PHHY2009NL49881

PATIENT
  Age: 22 Year
  Sex: Female

DRUGS (1)
  1. RITALIN [Suspect]

REACTIONS (2)
  - DECREASED APPETITE [None]
  - OFF LABEL USE [None]
